FAERS Safety Report 9395703 (Version 1)
Quarter: 2013Q3

REPORT INFORMATION
  Report Type: Spontaneous
  Country: JP (occurrence: JP)
  Receive Date: 20130711
  Receipt Date: 20130711
  Transmission Date: 20140515
  Serious: Yes (Hospitalization)
  Sender: FDA-Public Use
  Company Number: JP-SANOFI-AVENTIS-2013SA068429

PATIENT
  Age: 90 Year
  Sex: Male

DRUGS (2)
  1. CLOPIDOGREL BISULFATE [Suspect]
     Indication: PRODUCT USED FOR UNKNOWN INDICATION
     Route: 048
  2. TIENAM [Concomitant]
     Indication: PNEUMONIA ASPIRATION
     Route: 030

REACTIONS (7)
  - Acquired haemophilia [Recovered/Resolved]
  - Activated partial thromboplastin time prolonged [Recovered/Resolved]
  - Skin discolouration [Recovered/Resolved]
  - Subcutaneous haematoma [Recovered/Resolved]
  - Haemorrhage subcutaneous [Recovered/Resolved]
  - Factor VIII inhibition [Recovered/Resolved]
  - Anaemia [Recovered/Resolved]
